FAERS Safety Report 19728751 (Version 2)
Quarter: 2021Q3

REPORT INFORMATION
  Report Type: Spontaneous
  Country: US (occurrence: US)
  Receive Date: 20210820
  Receipt Date: 20210927
  Transmission Date: 20211014
  Serious: Yes (Other)
  Sender: FDA-Public Use
  Company Number: US-JNJFOC-20210820521

PATIENT
  Age: 76 Year
  Sex: Female
  Weight: 62.65 kg

DRUGS (6)
  1. STELARA [Suspect]
     Active Substance: USTEKINUMAB
     Indication: PSORIATIC ARTHROPATHY
  2. GABAPENTIN. [Concomitant]
     Active Substance: GABAPENTIN
  3. STELARA [Suspect]
     Active Substance: USTEKINUMAB
     Indication: PSORIASIS
     Route: 058
     Dates: start: 2015
  4. ALENDRONATE [Concomitant]
     Active Substance: ALENDRONATE SODIUM
  5. CALCIUM [Concomitant]
     Active Substance: CALCIUM
  6. OXYCODONE [Concomitant]
     Active Substance: OXYCODONE

REACTIONS (4)
  - Psoriatic arthropathy [Unknown]
  - Spinal operation [Unknown]
  - Psoriasis [Unknown]
  - Drug ineffective [Unknown]

NARRATIVE: CASE EVENT DATE: 20210526
